FAERS Safety Report 4713560-8 (Version None)
Quarter: 2005Q3

REPORT INFORMATION
  Report Type: 
  Country: None (occurrence: None)
  Receive Date: 20050713
  Receipt Date: 20050617
  Transmission Date: 20060218
  Serious: Yes (Death, Hospitalization)
  Sender: FDA-Public Use
  Company Number: US-BRISTOL-MYERS SQUIBB COMPANY-13008784

PATIENT
  Age: 38 Year
  Sex: Male

DRUGS (7)
  1. CETUXIMAB [Suspect]
     Indication: COLORECTAL CANCER METASTATIC
     Dosage: INITIAL TX DATE: 18-FEB-05.  STUDY DRUG HELD ON 25-MAR-05/DISCONTINUED ON 28-MAR-05.
     Route: 042
     Dates: start: 20050318, end: 20050318
  2. IRINOTECAN [Suspect]
     Indication: COLORECTAL CANCER METASTATIC
     Dosage: INITIAL TX DATE: 18-FEB-05. STUDY DRUG HELD ON 25-MAR-05/DISCONTINUED ON 28-MAR-05.
     Route: 042
     Dates: start: 20050311, end: 20050311
  3. HYCODAN [Concomitant]
     Route: 048
     Dates: start: 20050322, end: 20050424
  4. KEFLEX [Concomitant]
     Route: 048
     Dates: start: 20050401, end: 20050408
  5. OXYCONTIN [Concomitant]
     Route: 048
     Dates: start: 20050401, end: 20050424
  6. PREDNISONE TAB [Concomitant]
     Route: 048
     Dates: start: 20050414, end: 20050424
  7. SENOKOT [Concomitant]
     Route: 048
     Dates: start: 20050404, end: 20050424

REACTIONS (5)
  - DYSPNOEA [None]
  - MALIGNANT NEOPLASM PROGRESSION [None]
  - PNEUMONIA [None]
  - PNEUMONITIS [None]
  - RESPIRATORY FAILURE [None]
